FAERS Safety Report 6170862-9 (Version None)
Quarter: 2009Q2

REPORT INFORMATION
  Report Type: 
  Country: None (occurrence: None)
  Receive Date: 20090427
  Receipt Date: 20090413
  Transmission Date: 20091009
  Serious: Yes (Hospitalization)
  Sender: FDA-Public Use
  Company Number: 2009AL002139

PATIENT
  Age: 46 Year
  Sex: Female

DRUGS (8)
  1. CITALOPRAM HYDROBROMIDE [Suspect]
     Indication: DEPRESSION
     Dosage: 20 MG;QD
  2. FLUCONAZOLE [Concomitant]
  3. ESOMEPRAZOLE MAGNESIUM [Concomitant]
  4. DAPSONE [Concomitant]
  5. ACYCLOVIR [Concomitant]
  6. DEXAMETHASONE TAB [Concomitant]
  7. ZOLPIDEM TARTRATE [Concomitant]
  8. LOSARTAN POTASSIUM AND HYDROCHLOROTHIAZIDE [Concomitant]

REACTIONS (12)
  - AREFLEXIA [None]
  - BLOOD PRESSURE DIASTOLIC INCREASED [None]
  - CONVULSION [None]
  - DELIRIUM [None]
  - DEPRESSION [None]
  - DRUG INTERACTION [None]
  - DRUG TOXICITY [None]
  - HAEMOGLOBIN DECREASED [None]
  - MEMORY IMPAIRMENT [None]
  - PLATELET COUNT DECREASED [None]
  - PSYCHOMOTOR RETARDATION [None]
  - SEROTONIN SYNDROME [None]
